FAERS Safety Report 21633537 (Version 2)
Quarter: 2022Q4

REPORT INFORMATION
  Report Type: Spontaneous
  Country: US (occurrence: US)
  Receive Date: 20221123
  Receipt Date: 20221207
  Transmission Date: 20230113
  Serious: No
  Sender: FDA-Public Use
  Company Number: US-PFIZER INC-202201318001

PATIENT
  Sex: Female

DRUGS (2)
  1. CYTOMEL [Suspect]
     Active Substance: LIOTHYRONINE SODIUM
     Dosage: UNK (I TAKE 1 AND A HALF PILLS OF CYTOMEL)
  2. LEVOTHYROXINE SODIUM [Suspect]
     Active Substance: LEVOTHYROXINE SODIUM
     Dosage: UNK (FOR TWO DAYS I TAKE 100MCG OF LEVOTHYROXINE)

REACTIONS (4)
  - Overdose [Unknown]
  - Dizziness [Unknown]
  - Feeling abnormal [Unknown]
  - Tri-iodothyronine increased [Unknown]
